FAERS Safety Report 8208507-6 (Version None)
Quarter: 2012Q1

REPORT INFORMATION
  Report Type: 
  Country: None (occurrence: None)
  Receive Date: 20120314
  Receipt Date: 20120302
  Transmission Date: 20120608
  Serious: Yes (Hospitalization, Other)
  Sender: FDA-Public Use
  Company Number: BR-AMGEN-BRASP2012008746

PATIENT
  Age: 59 Year
  Sex: Female
  Weight: 64 kg

DRUGS (15)
  1. ENBREL [Suspect]
     Indication: RHEUMATOID ARTHRITIS
     Dosage: UNK
     Dates: start: 20091218, end: 20111101
  2. VITAMIN D [Concomitant]
     Dosage: 400 MG, (ONE CAPSULE, UNSPECIFIED FREQUENCY)
  3. GLUCOSAMINE SULFATE [Concomitant]
     Dosage: 3 TABLETS IN THE MORNING
  4. DIPIRONE [Concomitant]
     Indication: PAIN
     Dosage: UNK
  5. ENBREL [Suspect]
     Dosage: 50 MG, ONCE WEEKLY
     Route: 058
     Dates: start: 20111201
  6. REGULAR INSULIN [Concomitant]
     Dosage: 30 IU, 2X/DAY (IN THE MORNING AND AT NIGHT)
  7. PREDNISONE TAB [Concomitant]
     Dosage: 5 MG (ONE TABLET), 1X/DAY
  8. METFORMIN [Concomitant]
     Indication: DIABETES MELLITUS
     Dosage: UNK
  9. ENBREL [Suspect]
     Dosage: PFS
     Dates: start: 20120206
  10. ENBREL [Suspect]
     Dosage: 50 MG, ONCE WEEKLY
     Route: 058
     Dates: start: 20111205
  11. INSULIN [Concomitant]
     Dosage: TWICE DAILY
  12. PREDNISONE TAB [Concomitant]
     Indication: PAIN
     Dosage: UNK
  13. CALCIUM CARBONATE [Concomitant]
     Dosage: 500 MG, UNK
  14. CAPTOPRIL [Concomitant]
     Indication: RENAL DISORDER
     Dosage: 25 MG, TWICE, UNK
  15. IBUPROFEN [Concomitant]
     Indication: PAIN
     Dosage: UNK

REACTIONS (5)
  - INJECTION SITE PRURITUS [None]
  - FEMUR FRACTURE [None]
  - INJECTION SITE ERYTHEMA [None]
  - INJECTION SITE PAIN [None]
  - FALL [None]
